FAERS Safety Report 6734614-0 (Version None)
Quarter: 2010Q2

REPORT INFORMATION
  Report Type: 
  Country: None (occurrence: None)
  Receive Date: 20100520
  Receipt Date: 20100514
  Transmission Date: 20101027
  Serious: Yes (Other)
  Sender: FDA-Public Use
  Company Number: BR-ABBOTT-10P-020-0626208-00

PATIENT
  Sex: Female
  Weight: 86 kg

DRUGS (4)
  1. HUMIRA [Suspect]
     Indication: RHEUMATOID ARTHRITIS
     Route: 058
     Dates: end: 20091201
  2. AMLODIPINE BESILATE, LOSARTAN [Concomitant]
     Indication: DRUG USE FOR UNKNOWN INDICATION
     Route: 048
  3. HYGROTON [Concomitant]
     Indication: DRUG USE FOR UNKNOWN INDICATION
     Route: 048
  4. ARAVA [Concomitant]
     Indication: DRUG USE FOR UNKNOWN INDICATION
     Route: 048

REACTIONS (6)
  - FALL [None]
  - NASOPHARYNGITIS [None]
  - PLEURAL EFFUSION [None]
  - PLEURAL NEOPLASM [None]
  - PNEUMONIA [None]
  - PNEUMOTHORAX [None]
